FAERS Safety Report 7466001-4 (Version None)
Quarter: 2011Q2

REPORT INFORMATION
  Report Type: 
  Country: None (occurrence: None)
  Receive Date: 20110509
  Receipt Date: 20100518
  Transmission Date: 20111010
  Serious: No
  Sender: FDA-Public Use
  Company Number: US-ALEXION-A201000573

PATIENT
  Sex: Female

DRUGS (12)
  1. SOLIRIS [Suspect]
     Indication: PAROXYSMAL NOCTURNAL HAEMOGLOBINURIA
     Dosage: 600 MG, QWX4
     Route: 042
     Dates: start: 20070529, end: 20070601
  2. LEVOXYL [Concomitant]
     Indication: HYPOTHYROIDISM
  3. CALCIUM [Concomitant]
  4. ATENOLOL [Concomitant]
  5. HYDROCHLOROTHIAZIDE [Concomitant]
  6. PREDNISONE [Concomitant]
  7. UNIVASC [Concomitant]
  8. MULTI-VITAMINS [Concomitant]
  9. METFORMIN [Concomitant]
     Indication: DIABETES MELLITUS
  10. JANUVIA [Concomitant]
     Indication: DIABETES MELLITUS
  11. SOLIRIS [Suspect]
     Dosage: 900 MG, Q2W
     Route: 042
     Dates: start: 20070626
  12. FOLIC ACID [Concomitant]

REACTIONS (5)
  - THROAT IRRITATION [None]
  - COUGH [None]
  - HEADACHE [None]
  - FATIGUE [None]
  - NASOPHARYNGITIS [None]
